FAERS Safety Report 7204221-4 (Version None)
Quarter: 2010Q4

REPORT INFORMATION
  Report Type: 
  Country: None (occurrence: None)
  Receive Date: 20101230
  Receipt Date: 20101224
  Transmission Date: 20110411
  Serious: Yes (Life-Threatening, Hospitalization, Other)
  Sender: FDA-Public Use
  Company Number: JP-ROCHE-743051

PATIENT
  Sex: Male
  Weight: 59 kg

DRUGS (12)
  1. AVASTIN [Suspect]
     Indication: LUNG ADENOCARCINOMA
     Route: 041
     Dates: start: 20100909, end: 20100909
  2. AVASTIN [Suspect]
     Route: 041
     Dates: start: 20100930, end: 20100930
  3. AVASTIN [Suspect]
     Route: 041
     Dates: start: 20101021, end: 20101021
  4. ASPIRIN [Suspect]
     Route: 048
     Dates: start: 20080101, end: 20101108
  5. CLINORIL [Suspect]
     Indication: CANCER PAIN
     Route: 048
     Dates: start: 20080221, end: 20101108
  6. CARBOPLATIN [Suspect]
     Indication: LUNG ADENOCARCINOMA RECURRENT
     Dosage: DOSAGE IS UNCERTAIN.
     Route: 041
     Dates: start: 20100909, end: 20100909
  7. CARBOPLATIN [Suspect]
     Dosage: DOSAGE IS UNCERTAIN.
     Route: 041
     Dates: start: 20100930, end: 20100930
  8. CARBOPLATIN [Suspect]
     Dosage: DOSAGE IS UNCERTAIN.
     Route: 041
     Dates: start: 20101021, end: 20101021
  9. ALIMTA [Suspect]
     Indication: LUNG ADENOCARCINOMA RECURRENT
     Dosage: DOSAGE IS UNCERTAIN.
     Route: 041
     Dates: start: 20100909, end: 20100909
  10. ALIMTA [Suspect]
     Dosage: DOSAGE IS UNCERTAIN.
     Route: 041
     Dates: start: 20100930, end: 20100930
  11. ALIMTA [Suspect]
     Dosage: DOSAGE IS UNCERTAIN.
     Route: 041
     Dates: start: 20101021, end: 20101021
  12. SULBACILLIN [Concomitant]
     Dosage: GENERIC: SULBACTUM SODIUM WITH AMPICILLIN SODIUM.
     Route: 065
     Dates: start: 20101108, end: 20101109

REACTIONS (5)
  - CARDIAC FAILURE [None]
  - GASTRIC HAEMORRHAGE [None]
  - GASTRIC ULCER [None]
  - NEUTROPHIL COUNT DECREASED [None]
  - PLATELET COUNT DECREASED [None]
